FAERS Safety Report 6898993-6 (Version None)
Quarter: 2010Q3

REPORT INFORMATION
  Report Type: 
  Country: None (occurrence: None)
  Receive Date: 20100802
  Receipt Date: 20071226
  Transmission Date: 20110219
  Serious: No
  Sender: FDA-Public Use
  Company Number: US-PFIZER INC-2007106059

PATIENT
  Sex: Female
  Weight: 68.5 kg

DRUGS (4)
  1. LYRICA [Suspect]
     Indication: NEURALGIA
     Dates: start: 20071211
  2. LYRICA [Suspect]
     Indication: HYPOAESTHESIA
  3. STRATTERA [Concomitant]
  4. MOBIC [Concomitant]

REACTIONS (3)
  - DRUG INEFFECTIVE [None]
  - HEADACHE [None]
  - SOMNOLENCE [None]
